FAERS Safety Report 6831039-4 (Version None)
Quarter: 2010Q3

REPORT INFORMATION
  Report Type: 
  Country: None (occurrence: None)
  Receive Date: 20100712
  Receipt Date: 20100630
  Transmission Date: 20110219
  Serious: Yes (Hospitalization)
  Sender: FDA-Public Use
  Company Number: US-SANOFI-AVENTIS-2010SA038362

PATIENT
  Age: 67 Year
  Sex: Female

DRUGS (4)
  1. LOVENOX [Suspect]
     Route: 058
     Dates: start: 20100602, end: 20100605
  2. LIPITOR [Concomitant]
  3. VITAMINS [Concomitant]
  4. OXYGEN [Concomitant]

REACTIONS (4)
  - ANAEMIA [None]
  - BALANCE DISORDER [None]
  - HYPOTENSION [None]
  - TREMOR [None]
